FAERS Safety Report 8186199-2 (Version None)
Quarter: 2012Q1

REPORT INFORMATION
  Report Type: 
  Country: None (occurrence: None)
  Receive Date: 20120306
  Receipt Date: 20120227
  Transmission Date: 20120608
  Serious: No
  Sender: FDA-Public Use
  Company Number: US-PFIZER INC-US-WYE-H15322210

PATIENT
  Sex: Male

DRUGS (3)
  1. PRISTIQ [Concomitant]
     Dosage: UNK
  2. EFFEXOR XR [Suspect]
     Dosage: UNK
  3. VENLAFAXINE HCL [Suspect]
     Dosage: UNK

REACTIONS (1)
  - DRUG INEFFECTIVE [None]
